FAERS Safety Report 14577683 (Version 1)
Quarter: 2018Q1

REPORT INFORMATION
  Report Type: Spontaneous
  Country: IE (occurrence: IE)
  Receive Date: 20180227
  Receipt Date: 20180227
  Transmission Date: 20180509
  Serious: Yes (Death, Hospitalization)
  Sender: FDA-Public Use
  Company Number: IE-JNJFOC-20180235718

PATIENT
  Age: 79 Year
  Sex: Female

DRUGS (1)
  1. XARELTO [Suspect]
     Active Substance: RIVAROXABAN
     Indication: PRODUCT USED FOR UNKNOWN INDICATION
     Route: 048
     Dates: start: 2016

REACTIONS (9)
  - Vulval cancer [Fatal]
  - Metastases to lung [Fatal]
  - Vaginal haemorrhage [Unknown]
  - Muscular weakness [Unknown]
  - Infection [Unknown]
  - Vaginal infection [Unknown]
  - Gait disturbance [Unknown]
  - Metastases to lymph nodes [Fatal]
  - Agitation [Unknown]

NARRATIVE: CASE EVENT DATE: 2017
